FAERS Safety Report 6560274-8 (Version None)
Quarter: 2010Q1

REPORT INFORMATION
  Report Type: 
  Country: None (occurrence: None)
  Receive Date: 20100129
  Receipt Date: 20050209
  Transmission Date: 20100710
  Serious: No
  Sender: FDA-Public Use
  Company Number: US-ALLERGAN-200501289

PATIENT
  Age: 41 Year
  Sex: Female

DRUGS (5)
  1. BOTOX COSMETIC [Suspect]
     Indication: SKIN WRINKLING
     Dosage: 26UNITS, PRN
     Route: 030
     Dates: start: 20050208, end: 20050208
  2. TOPAMAX [Concomitant]
  3. CLONOPIN [Concomitant]
  4. SERACTIL [Concomitant]
  5. RESTORIL [Concomitant]

REACTIONS (4)
  - HEADACHE [None]
  - NAUSEA [None]
  - VOMITING [None]
  - WRONG TECHNIQUE IN DRUG USAGE PROCESS [None]
